FAERS Safety Report 5068767-X (Version None)
Quarter: 2006Q3

REPORT INFORMATION
  Report Type: 
  Country: None (occurrence: None)
  Receive Date: 20060802
  Receipt Date: 20060322
  Transmission Date: 20061208
  Serious: Yes (Other)
  Sender: FDA-Public Use
  Company Number: US-BRISTOL-MYERS SQUIBB COMPANY-13324587

PATIENT
  Age: 79 Year
  Sex: Female
  Weight: 80 kg

DRUGS (3)
  1. COUMADIN [Suspect]
     Indication: CARDIAC DISORDER
     Route: 048
  2. BENEFIBER [Suspect]
     Route: 048
     Dates: start: 20041103
  3. ANTIHYPERTENSIVE [Concomitant]

REACTIONS (2)
  - CONSTIPATION [None]
  - HAEMATOCHEZIA [None]
